FAERS Safety Report 11859394 (Version 1)
Quarter: 2015Q4

REPORT INFORMATION
  Report Type: Spontaneous
  Country: US (occurrence: US)
  Receive Date: 20151221
  Receipt Date: 20151221
  Transmission Date: 20160305
  Serious: No
  Sender: FDA-Public Use
  Company Number: US-009507513-1512USA008065

PATIENT
  Age: 24 Year
  Sex: Female
  Weight: 68.27 kg

DRUGS (1)
  1. NUVARING [Suspect]
     Active Substance: ETHINYL ESTRADIOL\ETONOGESTREL
     Indication: CONTRACEPTION
     Dosage: UNK, 3 WEEKS IN, 1 WEEK RING FREE BREAK
     Route: 067
     Dates: start: 201012

REACTIONS (2)
  - Inappropriate schedule of drug administration [Unknown]
  - Device expulsion [Unknown]

NARRATIVE: CASE EVENT DATE: 20151213
